FAERS Safety Report 6369713-9 (Version None)
Quarter: 2009Q3

REPORT INFORMATION
  Report Type: 
  Country: None (occurrence: None)
  Receive Date: 20090923
  Receipt Date: 20090806
  Transmission Date: 20100115
  Serious: Yes (Hospitalization)
  Sender: FDA-Public Use
  Company Number: FR-PFIZER INC-2009271097

PATIENT
  Age: 85 Year

DRUGS (11)
  1. ATARAX [Suspect]
     Dosage: 25 MG, DAILY
     Route: 048
     Dates: end: 20090426
  2. LEPTICUR [Suspect]
     Dosage: 10 MG, DAILY
     Route: 048
     Dates: end: 20090426
  3. RISPERDAL [Suspect]
     Dosage: 2 MG, DAILY
     Route: 048
     Dates: end: 20090426
  4. RAMIPRIL [Suspect]
     Dosage: 2.5 MG, DAILY
     Route: 048
     Dates: end: 20090426
  5. GLUCOR [Concomitant]
     Dosage: UNK
  6. MIANSERIN HYDROCHLORIDE [Concomitant]
     Dosage: UNK
  7. RIVOTRIL [Concomitant]
     Dosage: UNK
  8. DEPAMIDE [Concomitant]
     Dosage: UNK
  9. SPECIAFOLDINE [Concomitant]
     Dosage: UNK
  10. XYZAL [Concomitant]
     Dosage: UNK
  11. FORLAX [Concomitant]
     Dosage: UNK

REACTIONS (4)
  - AGITATION [None]
  - CONVULSION [None]
  - LUNG DISORDER [None]
  - MALAISE [None]
